FAERS Safety Report 25524133 (Version 1)
Quarter: 2025Q3

REPORT INFORMATION
  Report Type: Spontaneous
  Country: EU (occurrence: EU)
  Receive Date: 20250707
  Receipt Date: 20250707
  Transmission Date: 20251020
  Serious: Yes (Other)
  Sender: VIIV
  Company Number: EU-VIIV HEALTHCARE ULC-PT2025EME083882

PATIENT
  Sex: Male

DRUGS (1)
  1. JULUCA [Suspect]
     Active Substance: DOLUTEGRAVIR SODIUM\RILPIVIRINE HYDROCHLORIDE
     Indication: HIV infection

REACTIONS (2)
  - Clostridium difficile colitis [Unknown]
  - Renal impairment [Unknown]
